FAERS Safety Report 25734250 (Version 1)
Quarter: 2025Q3

REPORT INFORMATION
  Report Type: Spontaneous
  Country: US (occurrence: US)
  Receive Date: 20250828
  Receipt Date: 20250828
  Transmission Date: 20251021
  Serious: No
  Sender: TAKEDA
  Company Number: US-TAKEDA-2025TUS074871

PATIENT
  Weight: 80 kg

DRUGS (1)
  1. EOHILIA [Suspect]
     Active Substance: BUDESONIDE
     Indication: Eosinophilic oesophagitis
     Dosage: 2 MILLIGRAM, BID
     Dates: start: 20250423

REACTIONS (2)
  - No adverse event [Unknown]
  - Product use issue [Unknown]
